FAERS Safety Report 10960193 (Version 3)
Quarter: 2015Q2

REPORT INFORMATION
  Report Type: Spontaneous
  Country: US (occurrence: US)
  Receive Date: 20150327
  Receipt Date: 20150617
  Transmission Date: 20150821
  Serious: Yes (Hospitalization)
  Sender: FDA-Public Use
  Company Number: US-BAYER-2015-073232

PATIENT
  Age: 28 Year
  Sex: Female

DRUGS (13)
  1. PREMARIN [Concomitant]
     Active Substance: ESTROGENS, CONJUGATED
     Dosage: 1.25 MG, UNK
  2. KEFLEX [Concomitant]
     Active Substance: CEPHALEXIN
  3. IBUPROFEN. [Concomitant]
     Active Substance: IBUPROFEN
  4. MYCOLOG [Concomitant]
     Active Substance: GRAMICIDIN\NEOMYCIN SULFATE\NYSTATIN\TRIAMCINOLONE ACETONIDE
  5. MIRENA [Suspect]
     Active Substance: LEVONORGESTREL
     Indication: CONTRACEPTION
     Dosage: 20 MCG/24HR, CONT
     Route: 015
     Dates: start: 20090910, end: 20110512
  6. CELEXA [Concomitant]
     Active Substance: CITALOPRAM HYDROBROMIDE
  7. SOMA [Concomitant]
     Active Substance: CARISOPRODOL
  8. FIORICET [Concomitant]
     Active Substance: ACETAMINOPHEN\BUTALBITAL\CAFFEINE
     Indication: MIGRAINE
     Dosage: 50-325-40 MG
     Route: 048
     Dates: start: 2004
  9. PERCOCET [Concomitant]
     Active Substance: ACETAMINOPHEN\OXYCODONE HYDROCHLORIDE
  10. FLEXERIL [Concomitant]
     Active Substance: CYCLOBENZAPRINE HYDROCHLORIDE
     Indication: MIGRAINE
     Dosage: UNK
     Route: 048
     Dates: start: 2004, end: 20110425
  11. KLONOPIN [Concomitant]
     Active Substance: CLONAZEPAM
  12. PRENATAL VITAMINS [Concomitant]
     Active Substance: VITAMINS
  13. MACROBID [Concomitant]
     Active Substance: NITROFURANTOIN\NITROFURANTOIN MONOHYDRATE

REACTIONS (9)
  - Anxiety [Not Recovered/Not Resolved]
  - Feeling abnormal [None]
  - Injury [None]
  - Pain [None]
  - Depressed mood [None]
  - Embedded device [None]
  - Device difficult to use [None]
  - Emotional distress [None]
  - Depression [Not Recovered/Not Resolved]

NARRATIVE: CASE EVENT DATE: 200910
